FAERS Safety Report 8915768 (Version 4)
Quarter: 2013Q3

REPORT INFORMATION
  Report Type: Spontaneous
  Country: US (occurrence: US)
  Receive Date: 20121119
  Receipt Date: 20130712
  Transmission Date: 20140515
  Serious: No
  Sender: FDA-Public Use
  Company Number: US-PFIZER INC-2012285062

PATIENT
  Age: 63 Year
  Sex: Male
  Weight: 77.1 kg

DRUGS (4)
  1. XALATAN [Suspect]
     Dosage: 1 GTT, 1X/DAY (EACH EYE)
     Route: 047
     Dates: start: 201210, end: 2013
  2. XALATAN [Suspect]
     Dosage: 1 GTT, 1X/DAY (1 DROP BOTH EYES AT NIGHT)
     Route: 047
     Dates: start: 20121107, end: 20130312
  3. CELEXA [Concomitant]
     Dosage: UNK
  4. DIAZEPAM [Concomitant]
     Dosage: UNK

REACTIONS (2)
  - Drug ineffective [Unknown]
  - Eye pain [Unknown]
